FAERS Safety Report 8232530-9 (Version None)
Quarter: 2012Q1

REPORT INFORMATION
  Report Type: 
  Country: None (occurrence: None)
  Receive Date: 20120323
  Receipt Date: 20120321
  Transmission Date: 20120608
  Serious: Yes (Hospitalization, Other)
  Sender: FDA-Public Use
  Company Number: DE-BRISTOL-MYERS SQUIBB COMPANY-15812704

PATIENT
  Age: 52 Year
  Sex: Male
  Weight: 76 kg

DRUGS (5)
  1. IPILIMUMAB [Suspect]
     Indication: MALIGNANT MELANOMA
     Dosage: 10MG/KG
     Route: 042
     Dates: start: 20110511, end: 20110601
  2. BLINDED: PLACEBO [Suspect]
     Indication: MALIGNANT MELANOMA
     Route: 042
     Dates: start: 20110511, end: 20110601
  3. SELENIUM [Concomitant]
     Dosage: SELENIUM D12
     Dates: start: 20110502, end: 20110602
  4. URTICA [Concomitant]
     Dosage: URTICA D4
     Dates: start: 20110511, end: 20110602
  5. PODOPHYLLUM [Concomitant]
     Dosage: PODOPHYLLUM C6
     Dates: start: 20110527, end: 20110602

REACTIONS (8)
  - PYREXIA [None]
  - STAPHYLOCOCCAL INFECTION [None]
  - FIBROSIS [None]
  - ATRIAL FIBRILLATION [None]
  - COLITIS [None]
  - DEPRESSION [None]
  - ARTHRITIS [None]
  - AUTOIMMUNE HEPATITIS [None]
